FAERS Safety Report 7799948 (Version 3)
Quarter: 2014Q1

REPORT INFORMATION
  Report Type: Report from Study
  Country: DE (occurrence: DE)
  Receive Date: 20110204
  Receipt Date: 20140113
  Transmission Date: 20141002
  Serious: Yes (Death)
  Sender: FDA-Public Use
  Company Number: DE-ROCHE-757148

PATIENT
  Age: 66 Year
  Sex: Male
  Weight: 75 kg

DRUGS (3)
  1. TRASTUZUMAB [Suspect]
     Indication: GASTRIC CANCER
     Route: 042
     Dates: start: 20110117, end: 20110117
  2. CISPLATIN [Suspect]
     Indication: GASTRIC CANCER
     Route: 042
     Dates: start: 20110117, end: 20110117
  3. 5-FU [Suspect]
     Indication: GASTRIC CANCER
     Route: 042
     Dates: start: 20110117, end: 20110121

REACTIONS (1)
  - Death [Fatal]
